FAERS Safety Report 23618360 (Version 1)
Quarter: 2024Q1

REPORT INFORMATION
  Report Type: Spontaneous
  Country: US (occurrence: None)
  Receive Date: 20240310
  Receipt Date: 20240310
  Transmission Date: 20240410
  Serious: No
  Sender: FDA-Public Use
  Company Number: None

PATIENT
  Age: 74 Year
  Sex: Female
  Weight: 58.97 kg

DRUGS (9)
  1. AJOVY [Suspect]
     Active Substance: FREMANEZUMAB-VFRM
  2. FLUOXETINE HYDROCHLORIDE [Concomitant]
     Active Substance: FLUOXETINE HYDROCHLORIDE
  3. Rosuvastain 10mg [Concomitant]
  4. VALSARTAN [Concomitant]
     Active Substance: VALSARTAN
  5. COENZYME Q10 [Concomitant]
     Active Substance: DIETARY SUPPLEMENT\UBIDECARENONE
  6. Mg Bisglycinate [Concomitant]
  7. Vit D3 125mcg + MK7 100mcg [Concomitant]
  8. METAMUCIL [Concomitant]
     Active Substance: PLANTAGO SEED
  9. Collagen Peptide [Concomitant]

REACTIONS (3)
  - Pruritus [None]
  - Migraine [None]
  - Injection site rash [None]

NARRATIVE: CASE EVENT DATE: 20231203
